FAERS Safety Report 5258238-X (Version None)
Quarter: 2007Q1

REPORT INFORMATION
  Report Type: 
  Country: None (occurrence: None)
  Receive Date: 20070302
  Receipt Date: 20070228
  Transmission Date: 20070707
  Serious: Yes (Death)
  Sender: FDA-Public Use
  Company Number: S06-DEN-03800-01

PATIENT
  Age: 43 Year
  Sex: Female

DRUGS (9)
  1. LEXAPRO [Suspect]
     Indication: ANXIETY
     Dosage: 15 MG QD PO
     Route: 048
     Dates: start: 20060501
  2. LEXAPRO [Suspect]
     Indication: DEPRESSION
     Dosage: 15 MG QD PO
     Route: 048
     Dates: start: 20060501
  3. LEXAPRO [Suspect]
     Indication: DISEASE RECURRENCE
     Dosage: 15 MG QD PO
     Route: 048
     Dates: start: 20060501
  4. ALPRAZOLAM [Suspect]
     Indication: ANXIETY
     Dates: start: 20060701
  5. ALPRAZOLAM [Suspect]
     Indication: DEPRESSION
     Dates: start: 20060701
  6. ALPRAZOLAM [Suspect]
     Indication: ANXIETY
  7. ALPRAZOLAM [Suspect]
     Indication: DEPRESSION
  8. MIRTAZAPINE [Suspect]
     Dosage: 15 MG QD
     Dates: start: 20060801
  9. PROPRANOLOL [Suspect]
     Dosage: 40 MG QD

REACTIONS (1)
  - COMPLETED SUICIDE [None]
